FAERS Safety Report 5594399-0 (Version None)
Quarter: 2008Q1

REPORT INFORMATION
  Report Type: 
  Country: None (occurrence: None)
  Receive Date: 20080115
  Receipt Date: 20080115
  Transmission Date: 20080703
  Serious: Yes (Life-Threatening, Hospitalization)
  Sender: FDA-Public Use
  Company Number: None

PATIENT

DRUGS (2)
  1. NORMAL SALINE IV FLUSH 10 ML   AM2PAT, INC/ BBRAUN DISTRIBUTOR [Suspect]
     Indication: INTRAVENOUS CATHETER MANAGEMENT
     Dates: start: 20071020, end: 20071231
  2. NORMAL SALINE IV FLUSH 10 ML   AM2PAT, INC/ BBRAUN DISTRIBUTOR [Suspect]
     Indication: INTRAVENOUS CATHETER MANAGEMENT
     Dates: end: 20080109

REACTIONS (4)
  - BACTERAEMIA [None]
  - NOSOCOMIAL INFECTION [None]
  - SERRATIA INFECTION [None]
  - THERAPEUTIC PRODUCT CONTAMINATION [None]
